FAERS Safety Report 7582369-2 (Version None)
Quarter: 2011Q2

REPORT INFORMATION
  Report Type: 
  Country: None (occurrence: None)
  Receive Date: 20110630
  Receipt Date: 20110624
  Transmission Date: 20111010
  Serious: Yes (Hospitalization, Other)
  Sender: FDA-Public Use
  Company Number: US-JNJFOC-20100804155

PATIENT
  Sex: Female

DRUGS (4)
  1. STEROIDS NOS [Suspect]
     Indication: ARTHRITIS
     Route: 065
  2. LEVAQUIN [Suspect]
     Indication: URINARY TRACT INFECTION
     Route: 048
     Dates: start: 20040101, end: 20061230
  3. LEVAQUIN [Suspect]
     Indication: CYSTITIS
     Route: 048
     Dates: start: 20040101, end: 20061230
  4. LEVAQUIN [Suspect]
     Indication: ILL-DEFINED DISORDER

REACTIONS (6)
  - DEPRESSION [None]
  - TENDON PAIN [None]
  - MUSCULOSKELETAL PAIN [None]
  - TENDON RUPTURE [None]
  - GAIT DISTURBANCE [None]
  - THROMBOSIS [None]
